FAERS Safety Report 9405926 (Version 4)
Quarter: 2013Q3

REPORT INFORMATION
  Report Type: Report from Study
  Country: US (occurrence: US)
  Receive Date: 20130717
  Receipt Date: 20130816
  Transmission Date: 20140515
  Serious: Yes (Hospitalization, Other)
  Sender: FDA-Public Use
  Company Number: US-GLAXOSMITHKLINE-A1033757A

PATIENT
  Age: 54 Year
  Sex: Female
  Weight: 85 kg

DRUGS (8)
  1. DABRAFENIB [Suspect]
     Indication: METASTATIC MALIGNANT MELANOMA
     Dosage: 150MG TWICE PER DAY
     Route: 048
     Dates: start: 20130620, end: 20130709
  2. TRAMETINIB [Suspect]
     Indication: METASTATIC MALIGNANT MELANOMA
     Dosage: 2MG PER DAY
     Route: 048
     Dates: start: 20130620, end: 20130709
  3. CELEXA [Suspect]
     Indication: METASTATIC MALIGNANT MELANOMA
     Dosage: 20MG PER DAY
     Route: 048
     Dates: start: 20130620, end: 20130726
  4. AMBIEN [Concomitant]
     Indication: INSOMNIA
     Dosage: 5MG AS REQUIRED
     Route: 048
     Dates: start: 201303
  5. IBUPROFEN [Concomitant]
     Indication: PAIN
     Dosage: 800MG THREE TIMES PER DAY
     Dates: start: 201303
  6. MORPHINE SULFATE [Concomitant]
     Indication: PAIN
     Dosage: 15MG TWICE PER DAY
     Dates: start: 20130313
  7. OXYCODONE [Concomitant]
     Indication: PAIN
     Dosage: 10MG PER DAY
     Route: 048
     Dates: start: 201303
  8. REGLAN [Concomitant]
     Indication: GASTROINTESTINAL DISORDER
     Dates: start: 20130721

REACTIONS (6)
  - Febrile neutropenia [Unknown]
  - Transaminases increased [Unknown]
  - Nausea [Unknown]
  - Vomiting [Unknown]
  - Rash generalised [Unknown]
  - Inappropriate antidiuretic hormone secretion [Unknown]
